FAERS Safety Report 14553698 (Version 2)
Quarter: 2018Q1

REPORT INFORMATION
  Report Type: Spontaneous
  Country: DE (occurrence: DE)
  Receive Date: 20180220
  Receipt Date: 20180323
  Transmission Date: 20180509
  Serious: No
  Sender: FDA-Public Use
  Company Number: DE-BIOVERATIV-2017BV000419

PATIENT
  Sex: Female

DRUGS (1)
  1. ELOCTA [Suspect]
     Active Substance: EFMOROCTOCOG ALFA
     Indication: HAEMOPHILIA CARRIER
     Dosage: TWO HOURS PRIOR TO DELIVERY
     Route: 065
     Dates: start: 20170105, end: 20170105

REACTIONS (2)
  - Maternal exposure during pregnancy [Unknown]
  - Off label use [Recovered/Resolved]

NARRATIVE: CASE EVENT DATE: 20170105
